FAERS Safety Report 11412892 (Version 1)
Quarter: 2015Q3

REPORT INFORMATION
  Report Type: Spontaneous
  Country: FR (occurrence: FR)
  Receive Date: 20150824
  Receipt Date: 20150824
  Transmission Date: 20151125
  Serious: Yes (Hospitalization, Other)
  Sender: FDA-Public Use
  Company Number: FR-SA-2015SA125134

PATIENT
  Age: 63 Year
  Sex: Male

DRUGS (7)
  1. HEMI DAONIL [Suspect]
     Active Substance: GLYBURIDE
     Route: 048
  2. IMOVANE [Suspect]
     Active Substance: ZOPICLONE
     Route: 048
  3. TRANXENE T-TAB [Suspect]
     Active Substance: CLORAZEPATE DIPOTASSIUM
     Route: 048
  4. TERALITHE [Suspect]
     Active Substance: LITHIUM CARBONATE
     Route: 048
  5. TERCIAN [Suspect]
     Active Substance: CYAMEMAZINE
     Route: 048
  6. RISPERDAL [Suspect]
     Active Substance: RISPERIDONE
     Route: 048
  7. LAROXYL [Suspect]
     Active Substance: AMITRIPTYLINE
     Route: 048

REACTIONS (2)
  - Hypoglycaemia [Recovered/Resolved]
  - Malaise [Recovered/Resolved]

NARRATIVE: CASE EVENT DATE: 20150429
